FAERS Safety Report 7321883-1 (Version None)
Quarter: 2011Q1

REPORT INFORMATION
  Report Type: 
  Country: None (occurrence: None)
  Receive Date: 20110228
  Receipt Date: 20110203
  Transmission Date: 20110831
  Serious: Yes (Hospitalization)
  Sender: FDA-Public Use
  Company Number: PHFR2010GB04688

PATIENT
  Sex: Male

DRUGS (17)
  1. IBUPROFEN [Suspect]
     Dosage: 12 X 200 MG
     Route: 048
  2. PANADOL [Suspect]
     Dosage: 6 X 500 MG
     Route: 048
  3. LACTULOSE [Concomitant]
     Dosage: 30 MLS
     Route: 048
  4. NIQUITIN [Concomitant]
     Indication: SMOKING CESSATION THERAPY
     Route: 062
  5. MIRTAZAPINE [Suspect]
     Dosage: 45 MG
     Route: 048
  6. LITHIUM CARBONATE [Suspect]
     Dosage: UNK
     Dates: start: 20101008
  7. PRIADEL [Suspect]
     Indication: PERSONALITY DISORDER
     Dosage: 12 X 400 MG
     Route: 048
  8. CLOZARIL [Suspect]
     Indication: SCHIZOPHRENIA
     Dosage: 250 MG, BID
     Route: 048
     Dates: start: 20100429
  9. ACETAMINOPHEN [Suspect]
     Dosage: 8 X 500 MG
     Route: 048
  10. KALETRA [Concomitant]
     Dosage: UNK
     Route: 065
     Dates: start: 20100101
  11. CLOZARIL [Suspect]
     Dosage: 19 X 100 MG CLOZARIL TABLETS (1900 MG)
     Route: 048
     Dates: start: 20101008
  12. TRUVADA [Concomitant]
     Dosage: UNK
     Route: 065
     Dates: start: 20100101
  13. PRIADEL [Suspect]
     Dosage: 1200 MG
  14. CLOZARIL [Suspect]
     Dosage: UNK
     Route: 048
     Dates: start: 20101011
  15. MIRTAZAPINE [Suspect]
     Indication: DISSOCIATIVE IDENTITY DISORDER
     Dosage: 4 X45 MG
     Route: 048
     Dates: start: 20101008
  16. ALCOHOL [Suspect]
     Dosage: 4 PINTS
  17. HYOSCINE HBR HYT [Concomitant]
     Dosage: 900 MCG
     Route: 048

REACTIONS (4)
  - SUICIDE ATTEMPT [None]
  - INTENTIONAL OVERDOSE [None]
  - ALCOHOL USE [None]
  - MULTIPLE DRUG OVERDOSE INTENTIONAL [None]
